FAERS Safety Report 4470444-0 (Version None)
Quarter: 2004Q4

REPORT INFORMATION
  Report Type: 
  Country: None (occurrence: None)
  Receive Date: 20041005
  Receipt Date: 20041005
  Transmission Date: 20050328
  Serious: Yes (Life-Threatening, Hospitalization)
  Sender: FDA-Public Use
  Company Number: None

PATIENT
  Sex: Female
  Weight: 65.7716 kg

DRUGS (3)
  1. VIOXX [Suspect]
     Indication: ANKYLOSING SPONDYLITIS
     Dosage: 1  DAILY  ORAL
     Route: 048
     Dates: start: 20020310, end: 20040915
  2. VIOXX [Suspect]
     Indication: ARTHRITIS
     Dosage: 1  DAILY  ORAL
     Route: 048
     Dates: start: 20020310, end: 20040915
  3. CELEBREX [Concomitant]

REACTIONS (1)
  - CORONARY ARTERIAL STENT INSERTION [None]
